FAERS Safety Report 21831906 (Version 1)
Quarter: 2023Q1

REPORT INFORMATION
  Report Type: Spontaneous
  Country: US (occurrence: None)
  Receive Date: 20230106
  Receipt Date: 20230106
  Transmission Date: 20230418
  Serious: Yes (Death)
  Sender: FDA-Public Use
  Company Number: None

PATIENT
  Sex: Female

DRUGS (10)
  1. MYCOPHENOLIC ACID [Suspect]
     Active Substance: MYCOPHENOLIC ACID
  2. AMLODIPINE TAB [Concomitant]
  3. FUROSEMIDE TAB [Concomitant]
  4. FUROSEMIDE TAB [Concomitant]
  5. LEVEMIR INJ FLEXTOUC [Concomitant]
  6. LOSARTAN POT TAB [Concomitant]
  7. METOPROL TAR TAB [Concomitant]
  8. OMEPRAZOLE SODIUM [Concomitant]
     Active Substance: OMEPRAZOLE SODIUM
  9. TACROLIMUS [Concomitant]
     Active Substance: TACROLIMUS
  10. TACROLIMUS [Concomitant]
     Active Substance: TACROLIMUS

REACTIONS (1)
  - Death [None]
